FAERS Safety Report 9166728 (Version 1)
Quarter: 2013Q1

REPORT INFORMATION
  Report Type: Spontaneous
  Country: US (occurrence: US)
  Receive Date: 20130315
  Receipt Date: 20130315
  Transmission Date: 20140127
  Serious: Yes (Hospitalization)
  Sender: FDA-Public Use
  Company Number: US-009507513-1303USA002905

PATIENT
  Age: 69 Year
  Sex: Male

DRUGS (2)
  1. TICE BCG LIVE [Suspect]
     Indication: BLADDER CANCER
     Dosage: 50 MG, UNK
     Route: 043
     Dates: start: 2011, end: 2011
  2. TICE BCG LIVE [Suspect]
     Dosage: ONE THIRD OF THE INITIAL DOSE
     Route: 043
     Dates: start: 20120106, end: 20120106

REACTIONS (9)
  - Hypersensitivity [Recovered/Resolved]
  - Pyrexia [Recovered/Resolved]
  - Night sweats [Recovered/Resolved]
  - Chills [Recovered/Resolved]
  - Haemorrhage [Recovered/Resolved]
  - Urinary bladder haemorrhage [Recovered/Resolved]
  - Decreased appetite [Recovered/Resolved]
  - Myalgia [Recovered/Resolved]
  - Malaise [Recovered/Resolved]
